FAERS Safety Report 14540327 (Version 1)
Quarter: 2018Q1

REPORT INFORMATION
  Report Type: Not Available
  Country: IT (occurrence: IT)
  Receive Date: 20180216
  Receipt Date: 20180216
  Transmission Date: 20180509
  Serious: Yes (Other)
  Sender: FDA-Public Use
  Company Number: IT-SYNTHON BV-NL01PV18_45878

PATIENT
  Age: 69 Year
  Sex: Female

DRUGS (4)
  1. TAMSULOSIN [Suspect]
     Active Substance: TAMSULOSIN
     Indication: HYPERTENSION
     Dosage: 0.4 MG, QD
     Route: 048
     Dates: start: 20170101, end: 20170418
  2. NEBIVOLOL. [Suspect]
     Active Substance: NEBIVOLOL
     Indication: HYPERTENSION
     Dosage: 5 MG, QD
     Route: 048
     Dates: start: 20170101, end: 20170418
  3. ASCRIPTIN [Concomitant]
     Active Substance: ASPIRIN
     Dosage: UNK
  4. DELECIT [Concomitant]
     Active Substance: CHOLINE ALFOSCERATE
     Dosage: UNK

REACTIONS (3)
  - Hypotension [Recovering/Resolving]
  - Presyncope [Recovering/Resolving]
  - Disorganised speech [Recovering/Resolving]

NARRATIVE: CASE EVENT DATE: 20170418
